FAERS Safety Report 6089147-4 (Version None)
Quarter: 2009Q1

REPORT INFORMATION
  Report Type: 
  Country: None (occurrence: None)
  Receive Date: 20090224
  Receipt Date: 20090213
  Transmission Date: 20090719
  Serious: Yes (Life-Threatening, Hospitalization, Other)
  Sender: FDA-Public Use
  Company Number: BR-TEVA-185634ISR

PATIENT
  Sex: Female
  Weight: 66 kg

DRUGS (9)
  1. FLUOROURACIL [Suspect]
     Indication: COLORECTAL CANCER METASTATIC
     Route: 042
     Dates: start: 20080805
  2. IRINOTECAN HCL [Suspect]
     Indication: COLORECTAL CANCER METASTATIC
     Route: 042
     Dates: start: 20080805
  3. CALCIUM FOLINATE [Suspect]
     Indication: COLORECTAL CANCER METASTATIC
     Route: 042
     Dates: start: 20080805
  4. SUNITINIB MALATE [Suspect]
     Indication: COLORECTAL CANCER METASTATIC
  5. HYDROCHLOROTHIAZIDE [Concomitant]
     Dates: start: 20080401
  6. CAPTOPRIL [Concomitant]
     Dates: start: 20080401
  7. NIFEDIPINE [Concomitant]
     Dates: start: 20080401
  8. BROMOPRIDE [Concomitant]
     Dates: start: 20080804
  9. LOPERAMIDE HYDROCHLORIDE [Concomitant]
     Dates: start: 20080819

REACTIONS (1)
  - PULMONARY EMBOLISM [None]
